FAERS Safety Report 8033295-6 (Version None)
Quarter: 2012Q1

REPORT INFORMATION
  Report Type: 
  Country: None (occurrence: None)
  Receive Date: 20120110
  Receipt Date: 20120103
  Transmission Date: 20120608
  Serious: Yes (Other)
  Sender: FDA-Public Use
  Company Number: US-PFIZER INC-2012003568

PATIENT
  Sex: Female

DRUGS (1)
  1. LO/OVRAL-28 [Suspect]
     Indication: ORAL CONTRACEPTION
     Dosage: 1 PILL PER DAY
     Route: 048
     Dates: start: 20110601, end: 20111201

REACTIONS (9)
  - MUSCLE SPASMS [None]
  - DYSPNOEA [None]
  - DYSPEPSIA [None]
  - CYST [None]
  - ABDOMINAL DISCOMFORT [None]
  - BACK PAIN [None]
  - ABDOMINAL PAIN UPPER [None]
  - INAPPROPRIATE SCHEDULE OF DRUG ADMINISTRATION [None]
  - HEADACHE [None]
